FAERS Safety Report 16713181 (Version 1)
Quarter: 2019Q3

REPORT INFORMATION
  Report Type: Spontaneous
  Country: SE (occurrence: SE)
  Receive Date: 20190817
  Receipt Date: 20190817
  Transmission Date: 20191004
  Serious: Yes (Hospitalization)
  Sender: FDA-Public Use
  Company Number: SE-AMGEN-SWESP2019129386

PATIENT
  Age: 73 Year
  Sex: Female

DRUGS (1)
  1. PROLIA [Suspect]
     Active Substance: DENOSUMAB
     Indication: SPINAL STENOSIS
     Dosage: UNK
     Route: 065

REACTIONS (6)
  - Groin pain [Unknown]
  - Off label use [Unknown]
  - Pollakiuria [Unknown]
  - Pain in extremity [Unknown]
  - Gait disturbance [Unknown]
  - Urinary tract infection [Unknown]

NARRATIVE: CASE EVENT DATE: 20190620
